FAERS Safety Report 8843851 (Version 1)
Quarter: 2012Q4

REPORT INFORMATION
  Report Type: 
  Country: KR (occurrence: KR)
  Receive Date: 20121016
  Receipt Date: 20121016
  Transmission Date: 20130627
  Serious: Yes (Hospitalization, Other)
  Sender: FDA-Public Use
  Company Number: KR-BAUSCH-BL-2012-001249

PATIENT
  Age: 28 Year
  Sex: Female

DRUGS (3)
  1. DEXAMETHASONE [Suspect]
     Indication: ATRIOVENTRICULAR BLOCK
     Dosage: 4 mg daily
  2. DEXAMETHASONE [Suspect]
     Dosage: 2 mg daily
  3. NO DRUG NAME [Concomitant]
     Indication: SYSTEMIC LUPUS ERYTHEMATOSUS
     Dosage: 10 mg daily

REACTIONS (1)
  - Foetal growth restriction [Unknown]
